FAERS Safety Report 9491170 (Version 1)
Quarter: 2013Q3

REPORT INFORMATION
  Report Type: Report from Study
  Country: US (occurrence: US)
  Receive Date: 20130830
  Receipt Date: 20130830
  Transmission Date: 20140515
  Serious: Yes (Hospitalization)
  Sender: FDA-Public Use
  Company Number: PHEH2013US018237

PATIENT
  Age: 58 Year
  Sex: Male

DRUGS (1)
  1. GLEEVEC [Suspect]
     Dosage: 400 MG, QD
     Route: 048

REACTIONS (3)
  - Fall [Unknown]
  - Dizziness [Unknown]
  - Contusion [Unknown]
